FAERS Safety Report 18496675 (Version 1)
Quarter: 2020Q4

REPORT INFORMATION
  Report Type: Spontaneous
  Country: US (occurrence: US)
  Receive Date: 20201112
  Receipt Date: 20201112
  Transmission Date: 20210114
  Serious: Yes (Other)
  Sender: FDA-Public Use
  Company Number: None

PATIENT
  Age: 36 Year
  Sex: Female
  Weight: 121.5 kg

DRUGS (10)
  1. MELATONIN [Concomitant]
     Active Substance: MELATONIN
  2. MAYZENT [Concomitant]
     Active Substance: SIPONIMOD
  3. PREGABALIN. [Suspect]
     Active Substance: PREGABALIN
     Indication: NEUROPATHY PERIPHERAL
     Dosage: ?          QUANTITY:90 CAPSULE(S);?
     Route: 048
     Dates: start: 20100901, end: 20201111
  4. VITAMIN D3 [Concomitant]
     Active Substance: CHOLECALCIFEROL
  5. EFFEXOR [Concomitant]
     Active Substance: VENLAFAXINE HYDROCHLORIDE
  6. BELBUCA [Concomitant]
     Active Substance: BUPRENORPHINE HYDROCHLORIDE
  7. AMANTADINE. [Concomitant]
     Active Substance: AMANTADINE HYDROCHLORIDE
  8. OXYCODONE [Concomitant]
     Active Substance: OXYCODONE
  9. NORETH/ETHIN [Concomitant]
  10. VITAMIN B12 [Concomitant]
     Active Substance: CYANOCOBALAMIN

REACTIONS (1)
  - Respiratory distress [None]

NARRATIVE: CASE EVENT DATE: 20201111
